FAERS Safety Report 7916941-4 (Version None)
Quarter: 2011Q4

REPORT INFORMATION
  Report Type: 
  Country: None (occurrence: None)
  Receive Date: 20111114
  Receipt Date: 20111027
  Transmission Date: 20120403
  Serious: Yes (Death, Congenital Anomaly)
  Sender: FDA-Public Use
  Company Number: FK201102484

PATIENT
  Age: 0 Day
  Sex: Female

DRUGS (8)
  1. TRIPTORELINA [Suspect]
     Indication: IN VITRO FERTILISATION
  2. LYNESTRENOL (LYNESTRENOL) (LYNESTRENOL) [Suspect]
     Indication: IN VITRO FERTILISATION
  3. CHORIONIC GONADOTROPIN (MANUFACTURER UNKNOWN) (CHORIONIC GONADOTROPIN) [Suspect]
     Indication: IN VITRO FERTILISATION
  4. ESTRADIOL [Suspect]
     Indication: IN VITRO FERTILISATION
  5. MENOTROPINS [Suspect]
     Indication: IN VITRO FERTILISATION
  6. FOLLITROPIN RECOMBINANT [Suspect]
     Indication: IN VITRO FERTILISATION
  7. NADROPARIN (NADROPARIN) (NADROPARIN) [Suspect]
  8. ACETYLSALICYLIC ACID SRT [Suspect]

REACTIONS (11)
  - MATERNAL DRUGS AFFECTING FOETUS [None]
  - CEPHALO-PELVIC DISPROPORTION [None]
  - FEEDING DISORDER NEONATAL [None]
  - CIRCULATORY COLLAPSE [None]
  - BRAIN HERNIATION [None]
  - HEPATOBLASTOMA [None]
  - TUMOUR NECROSIS [None]
  - CARDIOPULMONARY FAILURE [None]
  - CAESAREAN SECTION [None]
  - TUMOUR HAEMORRHAGE [None]
  - CRANIOPHARYNGIOMA [None]
